FAERS Safety Report 6053711-9 (Version None)
Quarter: 2009Q1

REPORT INFORMATION
  Report Type: 
  Country: None (occurrence: None)
  Receive Date: 20090122
  Receipt Date: 20090102
  Transmission Date: 20090719
  Serious: No
  Sender: FDA-Public Use
  Company Number: C-09-0007-W

PATIENT

DRUGS (1)
  1. ENALAPRIL MALEATE TABLETS, 20MG (WOCKHARDT) [Suspect]
     Indication: HYPERTENSION

REACTIONS (4)
  - DRUG INEFFECTIVE [None]
  - MALABSORPTION [None]
  - MEDICATION RESIDUE [None]
  - PRODUCT QUALITY ISSUE [None]
